FAERS Safety Report 10352488 (Version 1)
Quarter: 2014Q3

REPORT INFORMATION
  Report Type: Spontaneous
  Country: US (occurrence: US)
  Receive Date: 20140730
  Receipt Date: 20140730
  Transmission Date: 20150326
  Serious: No
  Sender: FDA-Public Use
  Company Number: US-ABBVIE-14P-163-1210343-00

PATIENT
  Sex: Female
  Weight: 72.64 kg

DRUGS (2)
  1. SYNTHROID [Suspect]
     Active Substance: LEVOTHYROXINE SODIUM
     Indication: AUTOIMMUNE THYROIDITIS
  2. LEVOTHYROXINE [Suspect]
     Active Substance: LEVOTHYROXINE
     Indication: AUTOIMMUNE THYROIDITIS

REACTIONS (8)
  - Unevaluable event [Unknown]
  - Palpitations [Unknown]
  - Weight increased [Unknown]
  - Laboratory test abnormal [Unknown]
  - Fatigue [Unknown]
  - Insomnia [Unknown]
  - Alopecia [Unknown]
  - Dry skin [Unknown]
